FAERS Safety Report 5117154-4 (Version None)
Quarter: 2006Q3

REPORT INFORMATION
  Report Type: 
  Country: None (occurrence: None)
  Receive Date: 20060927
  Receipt Date: 20060927
  Transmission Date: 20061208
  Serious: Yes (Death)
  Sender: FDA-Public Use
  Company Number: None

PATIENT
  Sex: Male
  Weight: 28.5766 kg

DRUGS (1)
  1. LORATADINE [Suspect]
     Indication: MULTIPLE ALLERGIES
     Dosage: 1 TABLET PO
     Route: 048
     Dates: start: 20050101, end: 20060110

REACTIONS (1)
  - DEATH [None]
